FAERS Safety Report 8595623-2 (Version None)
Quarter: 2012Q3

REPORT INFORMATION
  Report Type: 
  Country: None (occurrence: None)
  Receive Date: 20120801
  Receipt Date: 20120717
  Transmission Date: 20120928
  Serious: Yes (Death, Other)
  Sender: FDA-Public Use
  Company Number: US-2011-10133

PATIENT
  Age: 63 Year
  Sex: Female

DRUGS (4)
  1. CLOFARABINE [Concomitant]
  2. BUSULFEX [Suspect]
     Indication: STEM CELL TRANSPLANT
     Dosage: 3.2 MG/KG, DAILY DOSE
  3. FLUDARABINE PHOSPHATE [Suspect]
     Indication: STEM CELL TRANSPLANT
     Dosage: 30 MG/M2/D
  4. ALEMTUZUMAB (ALEMTUZUMAB) [Suspect]
     Indication: STEM CELL TRANSPLANT
     Dosage: 100 MG MILLIGRAM(S), DAILY DOSE

REACTIONS (2)
  - INFECTION [None]
  - PULMONARY OEDEMA [None]
